FAERS Safety Report 6337095-4 (Version None)
Quarter: 2009Q3

REPORT INFORMATION
  Report Type: 
  Country: None (occurrence: None)
  Receive Date: 20090831
  Receipt Date: 20090821
  Transmission Date: 20100115
  Serious: Yes (Hospitalization)
  Sender: FDA-Public Use
  Company Number: FABR-1000953

PATIENT
  Age: 45 Year
  Sex: Male
  Weight: 145.1 kg

DRUGS (5)
  1. FABRAZYME [Suspect]
     Indication: FABRY'S DISEASE
     Dosage: 75 MG, Q2W, INTRAVENOUS; 150 MG, Q2W, INTRAVENOUS
     Route: 042
     Dates: start: 20040101, end: 20090101
  2. FABRAZYME [Suspect]
     Indication: FABRY'S DISEASE
     Dosage: 75 MG, Q2W, INTRAVENOUS; 150 MG, Q2W, INTRAVENOUS
     Route: 042
     Dates: start: 20090706, end: 20090818
  3. REGLAN [Concomitant]
  4. NEURONTIN [Concomitant]
  5. LYRICA [Concomitant]

REACTIONS (6)
  - ABDOMINAL PAIN [None]
  - CELLULITIS [None]
  - CONDITION AGGRAVATED [None]
  - LYMPHOEDEMA [None]
  - NEURALGIA [None]
  - VOMITING [None]
